FAERS Safety Report 16951069 (Version 1)
Quarter: 2019Q4

REPORT INFORMATION
  Report Type: Spontaneous
  Country: US (occurrence: US)
  Receive Date: 20191022
  Receipt Date: 20191022
  Transmission Date: 20200122
  Serious: Yes (Life-Threatening, Hospitalization)
  Sender: FDA-Public Use
  Company Number: None

PATIENT
  Age: 91 Year
  Sex: Female
  Weight: 44 kg

DRUGS (6)
  1. METOPROLOL SUCCINATE 25 MG [Concomitant]
     Active Substance: METOPROLOL SUCCINATE
  2. ORBACTIV [Suspect]
     Active Substance: ORITAVANCIN
     Indication: POST PROCEDURAL INFECTION
     Dosage: ?          OTHER FREQUENCY:SECOND DOSE;?
     Route: 042
     Dates: start: 20191003, end: 20191017
  3. ATORVASTATIN 20 MG [Concomitant]
     Active Substance: ATORVASTATIN
  4. ALPRAZOLAM 0.25 MG [Concomitant]
     Active Substance: ALPRAZOLAM
  5. POLYETHYLENE GLYCOL 3350. [Concomitant]
     Active Substance: POLYETHYLENE GLYCOL 3350
  6. MIRTAZAPINE 15 MG [Concomitant]
     Active Substance: MIRTAZAPINE

REACTIONS (2)
  - Dyspnoea [None]
  - Back pain [None]

NARRATIVE: CASE EVENT DATE: 20191017
